FAERS Safety Report 5072684-9 (Version None)
Quarter: 2006Q3

REPORT INFORMATION
  Report Type: 
  Country: None (occurrence: None)
  Receive Date: 20060801
  Receipt Date: 20060719
  Transmission Date: 20061208
  Serious: Yes (Congenital Anomaly)
  Sender: FDA-Public Use
  Company Number: E2090-00047-SPO-US

PATIENT
  Sex: Male
  Weight: 3.2 kg

DRUGS (2)
  1. ZONEGRAN [Suspect]
     Indication: DRUG EXPOSURE DURING PREGNANCY
     Dosage: 600-700 MG, INTRA-UTERINE
     Route: 015
     Dates: start: 20040527, end: 20040801
  2. KEPPRA [Suspect]
     Indication: DRUG EXPOSURE DURING PREGNANCY
     Dosage: INTRA-UTERINE
     Route: 015
     Dates: start: 20040527

REACTIONS (4)
  - CONVULSION NEONATAL [None]
  - DRUG EXPOSURE DURING PREGNANCY [None]
  - HYPOCALCAEMIA [None]
  - NEONATAL HYPOPARATHYROIDISM [None]
